FAERS Safety Report 5761653-9 (Version None)
Quarter: 2008Q2

REPORT INFORMATION
  Report Type: 
  Country: None (occurrence: None)
  Receive Date: 20080606
  Receipt Date: 20080527
  Transmission Date: 20081010
  Serious: Yes (Hospitalization, Other)
  Sender: FDA-Public Use
  Company Number: US-PFIZER INC-2007091054

PATIENT
  Sex: Female

DRUGS (1)
  1. BEXTRA [Suspect]
     Indication: OSTEOARTHRITIS

REACTIONS (5)
  - ANXIETY [None]
  - CHEST PAIN [None]
  - DEPRESSION [None]
  - HYPERSENSITIVITY [None]
  - MYOCARDIAL INFARCTION [None]
